FAERS Safety Report 7705650-2 (Version None)
Quarter: 2011Q3

REPORT INFORMATION
  Report Type: 
  Country: None (occurrence: None)
  Receive Date: 20110824
  Receipt Date: 20110818
  Transmission Date: 20111222
  Serious: Yes (Other)
  Sender: FDA-Public Use
  Company Number: PH-NOVOPROD-333887

PATIENT

DRUGS (5)
  1. CARVEDILOL [Concomitant]
     Dosage: 6.25 MG, QD
     Route: 048
  2. LEVOTHYROXINE SODIUM [Concomitant]
     Dosage: 25-100 MEQ, UNK
     Route: 048
  3. OMEPRAZOLE [Concomitant]
     Dosage: 20 MG, QD
     Route: 048
  4. L-CARNITHINE [Concomitant]
     Dosage: 1000 MG, QD
     Route: 048
     Dates: start: 20110602, end: 20110618
  5. VICTOZA [Suspect]
     Indication: DIABETES MELLITUS
     Dosage: 0.6 MG, QD
     Dates: start: 20110602, end: 20110618

REACTIONS (2)
  - HEART RATE IRREGULAR [None]
  - AGITATION [None]
